FAERS Safety Report 13999426 (Version 1)
Quarter: 2017Q3

REPORT INFORMATION
  Report Type: Spontaneous
  Country: US (occurrence: US)
  Receive Date: 20170922
  Receipt Date: 20170922
  Transmission Date: 20171128
  Serious: No
  Sender: FDA-Public Use
  Company Number: US-ASTRAZENECA-2017SE96412

PATIENT
  Age: 840 Month
  Sex: Male
  Weight: 57.6 kg

DRUGS (10)
  1. TOBI POD-HALER / TOBRAMYCIN [Concomitant]
     Indication: DYSPNOEA
     Route: 055
  2. SODIUM CHLORIDE. [Concomitant]
     Active Substance: SODIUM CHLORIDE
     Indication: DYSPNOEA
     Dosage: TWO TIMES A DAY
     Route: 055
  3. ASMANEX TWIST-HALER INHALER [Concomitant]
     Indication: DYSPNOEA
     Route: 055
  4. SEREVENT DISKUS INHALER [Concomitant]
     Indication: DYSPNOEA
     Route: 055
  5. SPIRIVA [Concomitant]
     Active Substance: TIOTROPIUM BROMIDE MONOHYDRATE
     Indication: DYSPNOEA
     Route: 055
  6. ALBUTEROL VIA NEBULIZER [Concomitant]
     Indication: DYSPNOEA
     Dosage: TWO TIMES A DAY
     Route: 055
  7. DALIRESP [Suspect]
     Active Substance: ROFLUMILAST
     Indication: CHRONIC OBSTRUCTIVE PULMONARY DISEASE
     Route: 048
     Dates: start: 201709
  8. IPRATROPIUM BROMIDE. [Concomitant]
     Active Substance: IPRATROPIUM BROMIDE
     Indication: DYSPNOEA
     Dosage: TWO TIMES A DAY
     Route: 055
  9. PREDNISONE. [Concomitant]
     Active Substance: PREDNISONE
     Indication: DYSPNOEA
     Route: 048
  10. VENTOLIN / ALBUTEROL INHALER [Concomitant]
     Indication: DYSPNOEA
     Route: 055

REACTIONS (9)
  - Sleep disorder [Not Recovered/Not Resolved]
  - Cronobacter infection [Not Recovered/Not Resolved]
  - Lung infection [Not Recovered/Not Resolved]
  - Drug ineffective [Not Recovered/Not Resolved]
  - Bronchitis [Not Recovered/Not Resolved]
  - Pseudomonas infection [Not Recovered/Not Resolved]
  - Cystic fibrosis [Not Recovered/Not Resolved]
  - Visual impairment [Not Recovered/Not Resolved]
  - Dyspnoea [Not Recovered/Not Resolved]

NARRATIVE: CASE EVENT DATE: 201709
